FAERS Safety Report 4762917-8 (Version None)
Quarter: 2005Q3

REPORT INFORMATION
  Report Type: 
  Country: None (occurrence: None)
  Receive Date: 20050907
  Receipt Date: 20050830
  Transmission Date: 20060218
  Serious: Yes (Other)
  Sender: FDA-Public Use
  Company Number: PHEH2005US09691

PATIENT
  Age: 75 Year
  Sex: Female
  Weight: 56 kg

DRUGS (4)
  1. ZOMETA [Suspect]
     Indication: MULTIPLE MYELOMA
     Dosage: 4 MG IV MONTHLY
     Route: 042
     Dates: start: 20020222, end: 20050720
  2. THALIDOMIDE [Concomitant]
     Indication: CHEMOTHERAPY
     Dosage: UNK,UNK
     Dates: start: 20040106, end: 20040603
  3. DEXAMETHASONE [Concomitant]
     Indication: CHEMOTHERAPY
     Dosage: UNK, UNK
     Dates: start: 20040106, end: 20040603
  4. PROCRIT [Concomitant]

REACTIONS (7)
  - ASEPTIC NECROSIS BONE [None]
  - BONE DEBRIDEMENT [None]
  - BONE DISORDER [None]
  - BONE LESION [None]
  - BONE TRIMMING [None]
  - GINGIVAL OPERATION [None]
  - GINGIVAL ULCERATION [None]
